APPROVED DRUG PRODUCT: PROPRANOLOL HYDROCHLORIDE
Active Ingredient: PROPRANOLOL HYDROCHLORIDE
Strength: 20MG/5ML
Dosage Form/Route: SOLUTION;ORAL
Application: A071984 | Product #001
Applicant: PAI HOLDINGS LLC DBA PHARMACEUTICAL ASSOCIATES INC
Approved: Mar 3, 1989 | RLD: No | RS: No | Type: DISCN